FAERS Safety Report 7170924-3 (Version None)
Quarter: 2010Q4

REPORT INFORMATION
  Report Type: 
  Country: None (occurrence: None)
  Receive Date: 20101217
  Receipt Date: 20101210
  Transmission Date: 20110411
  Serious: Yes (Hospitalization, Other)
  Sender: FDA-Public Use
  Company Number: US-ELI_LILLY_AND_COMPANY-US201007002031

PATIENT
  Sex: Male
  Weight: 74.9 kg

DRUGS (12)
  1. PEMETREXED [Suspect]
     Indication: NON-SMALL CELL LUNG CANCER
     Dosage: 500 MG/M2, OTHER
     Dates: start: 20100605
  2. PEMETREXED [Suspect]
  3. MS CONTIN [Concomitant]
  4. OMEPRAZOLE [Concomitant]
  5. LORAZEPAM [Concomitant]
  6. COLACE [Concomitant]
  7. SENNA [Concomitant]
  8. FOLATE [Concomitant]
  9. VITAMIN B-12 [Concomitant]
  10. DEXAMETHASONE [Concomitant]
  11. ISONIAZID [Concomitant]
  12. PYRIDOXINE HCL [Concomitant]

REACTIONS (1)
  - APPENDICITIS [None]
